FAERS Safety Report 14109257 (Version 1)
Quarter: 2017Q4

REPORT INFORMATION
  Report Type: Spontaneous
  Country: US (occurrence: US)
  Receive Date: 20171019
  Receipt Date: 20171019
  Transmission Date: 20180321
  Serious: Yes (Other)
  Sender: FDA-Public Use
  Company Number: US-BEH-2017084421

PATIENT
  Sex: Female
  Weight: 98.87 kg

DRUGS (22)
  1. FOLIC ACID. [Concomitant]
     Active Substance: FOLIC ACID
  2. SINGULAIR [Concomitant]
     Active Substance: MONTELUKAST SODIUM
  3. ALBUTEROL                          /00139501/ [Concomitant]
     Active Substance: ALBUTEROL
  4. HIZENTRA [Suspect]
     Active Substance: HUMAN IMMUNOGLOBULIN G
     Indication: IMMUNODEFICIENCY COMMON VARIABLE
     Dosage: UNK
     Route: 058
  5. HIZENTRA [Suspect]
     Active Substance: HUMAN IMMUNOGLOBULIN G
     Indication: CHRONIC SINUSITIS
     Dosage: 10 G, QW
     Route: 058
     Dates: start: 20140515
  6. CYCLOBENZAPRINE. [Concomitant]
     Active Substance: CYCLOBENZAPRINE
  7. AMITIZA [Concomitant]
     Active Substance: LUBIPROSTONE
  8. VITAMIN D3 [Concomitant]
     Active Substance: CHOLECALCIFEROL
  9. KLOR-CON [Concomitant]
     Active Substance: POTASSIUM CHLORIDE
  10. RESTASIS [Concomitant]
     Active Substance: CYCLOSPORINE
  11. HYDROXYCHLOROQUINE [Concomitant]
     Active Substance: HYDROXYCHLOROQUINE
  12. KEFLEX [Concomitant]
     Active Substance: CEPHALEXIN
  13. ORENCIA [Concomitant]
     Active Substance: ABATACEPT
  14. METHOTREXATE. [Concomitant]
     Active Substance: METHOTREXATE
  15. SYNTHROID [Concomitant]
     Active Substance: LEVOTHYROXINE SODIUM
  16. DEXILANT [Concomitant]
     Active Substance: DEXLANSOPRAZOLE
  17. DICLOFENAC [Concomitant]
     Active Substance: DICLOFENAC
  18. KLONOPIN [Concomitant]
     Active Substance: CLONAZEPAM
  19. LIDODERM [Concomitant]
     Active Substance: LIDOCAINE
  20. CYMBALTA [Concomitant]
     Active Substance: DULOXETINE HYDROCHLORIDE
  21. LINZESS [Concomitant]
     Active Substance: LINACLOTIDE
  22. PYRIDIUM [Concomitant]
     Active Substance: PHENAZOPYRIDINE

REACTIONS (3)
  - Inflammation [Unknown]
  - Chest pain [Unknown]
  - Rheumatoid arthritis [Unknown]
